FAERS Safety Report 6761541-5 (Version None)
Quarter: 2010Q2

REPORT INFORMATION
  Report Type: 
  Country: None (occurrence: None)
  Receive Date: 20100608
  Receipt Date: 20100604
  Transmission Date: 20101027
  Serious: Yes (Other)
  Sender: FDA-Public Use
  Company Number: AU-BRISTOL-MYERS SQUIBB COMPANY-15101488

PATIENT
  Age: 89 Year
  Sex: Female

DRUGS (5)
  1. AVAPRO [Suspect]
     Indication: BLOOD PRESSURE
     Dosage: DOSE INCREASED 300 MG DAILY
     Route: 048
     Dates: start: 20070101
  2. INDAPAMIDE [Suspect]
     Indication: BLOOD PRESSURE
     Route: 048
  3. LIPITOR [Concomitant]
     Indication: BLOOD CHOLESTEROL
     Route: 048
  4. ACTONEL COMBI D [Concomitant]
     Indication: OSTEOPOROSIS
     Route: 048
  5. VENTOLIN [Concomitant]
     Indication: ASTHMA
     Dosage: 1.2 QDS ,MDI

REACTIONS (2)
  - ASTHMA [None]
  - BLOOD PRESSURE INCREASED [None]
